FAERS Safety Report 20343968 (Version 3)
Quarter: 2023Q1

REPORT INFORMATION
  Report Type: Other
  Country: AU (occurrence: AU)
  Receive Date: 20220118
  Receipt Date: 20230109
  Transmission Date: 20230417
  Serious: Yes (Life-Threatening)
  Sender: FDA-Public Use
  Company Number: AU-002147023-NVSC2021AU041411

PATIENT
  Age: 48 Year
  Sex: Male

DRUGS (2)
  1. OMALIZUMAB [Suspect]
     Active Substance: OMALIZUMAB
     Indication: Anaphylactic reaction
     Dosage: 300 MG, QMO
     Route: 065
     Dates: start: 20201216
  2. OMALIZUMAB [Suspect]
     Active Substance: OMALIZUMAB
     Indication: Psoriasis
     Dosage: 150 MG, QMO (STRENGTH 150 MG)
     Route: 065
     Dates: start: 20210111

REACTIONS (3)
  - Anaphylactic reaction [Recovered/Resolved]
  - Skin reaction [Not Recovered/Not Resolved]
  - Off label use [Unknown]

NARRATIVE: CASE EVENT DATE: 20201216
